FAERS Safety Report 7295152-2 (Version None)
Quarter: 2011Q1

REPORT INFORMATION
  Report Type: 
  Country: None (occurrence: None)
  Receive Date: 20110216
  Receipt Date: 20110208
  Transmission Date: 20110831
  Serious: Yes (Hospitalization)
  Sender: FDA-Public Use
  Company Number: FR-JNJFOC-20090302574

PATIENT
  Age: 30 Year
  Sex: Female
  Weight: 48 kg

DRUGS (4)
  1. OROKEN [Concomitant]
     Indication: ABDOMINAL ABSCESS
  2. INFLIXIMAB [Suspect]
     Route: 042
  3. PENTASA [Concomitant]
  4. INFLIXIMAB [Suspect]
     Indication: CROHN'S DISEASE
     Route: 042

REACTIONS (3)
  - INTESTINAL RESECTION [None]
  - ABDOMINAL ABSCESS [None]
  - ANXIETY [None]
